FAERS Safety Report 8620638-5 (Version None)
Quarter: 2012Q3

REPORT INFORMATION
  Report Type: 
  Country: None (occurrence: None)
  Receive Date: 20120824
  Receipt Date: 20120815
  Transmission Date: 20120928
  Serious: Yes (Hospitalization, Other)
  Sender: FDA-Public Use
  Company Number: US-009507513-1202USA03511

PATIENT

DRUGS (19)
  1. SYNTHROID [Concomitant]
     Dosage: 200 MICROGRAM, QD
     Dates: start: 20030903
  2. SYNTHROID [Concomitant]
     Dosage: 137 UNK, UNK
  3. LIPITOR [Concomitant]
     Indication: HYPERCHOLESTEROLAEMIA
     Dosage: 60 MG, HS
     Route: 048
  4. AMBIEN [Concomitant]
     Indication: INSOMNIA
     Dosage: UNK
     Dates: start: 20031231
  5. LEVOTHYROXINE SODIUM [Concomitant]
     Indication: HYPOTHYROIDISM
     Dosage: 125 MICROGRAM, QD
  6. DETROL LA [Concomitant]
     Indication: URINARY INCONTINENCE
     Dosage: 2 MG, HS
  7. LEVOXYL [Concomitant]
  8. FOSAMAX [Suspect]
     Indication: OSTEOPOROSIS
     Dosage: 70 MG, UNK
     Route: 048
     Dates: start: 20030101, end: 20080601
  9. LIPITOR [Concomitant]
     Dosage: 80 UNK, UNK
     Route: 048
  10. SYNTHROID [Concomitant]
     Dosage: 75 UNK, UNK
     Route: 048
  11. XANAX [Concomitant]
     Indication: INSOMNIA
     Dosage: 0.25 MG, UNK
  12. ALENDRONATE SODIUM [Suspect]
     Indication: OSTEOPOROSIS
     Dosage: 70 MG, UNK
     Route: 048
     Dates: start: 20080601, end: 20110701
  13. LEVOTHYROXINE SODIUM [Concomitant]
  14. CLARITIN [Concomitant]
  15. ALBUTEROL [Concomitant]
     Indication: SEASONAL ALLERGY
  16. TRAZODONE HCL [Concomitant]
     Indication: INSOMNIA
     Dosage: 25 MG, UNK
     Route: 048
     Dates: start: 20050312
  17. SYNTHROID [Concomitant]
     Indication: HYPOTHYROIDISM
     Dosage: 175 MICROGRAM, QD
     Route: 048
  18. PREVACID [Concomitant]
     Indication: GASTROOESOPHAGEAL REFLUX DISEASE
     Dosage: 30 MG, UNK
     Route: 048
  19. HALCION [Concomitant]
     Indication: INSOMNIA
     Dosage: 0.25 MG, UNK

REACTIONS (38)
  - FEMUR FRACTURE [None]
  - BASAL CELL CARCINOMA [None]
  - OSTEOPENIA [None]
  - CATARACT [None]
  - DRY SKIN [None]
  - ROTATOR CUFF SYNDROME [None]
  - PNEUMONIA [None]
  - FIBROCYSTIC BREAST DISEASE [None]
  - FIBROUS HISTIOCYTOMA [None]
  - LUNG NEOPLASM [None]
  - DYSPEPSIA [None]
  - VASCULAR CALCIFICATION [None]
  - FATIGUE [None]
  - HYPERGLYCAEMIA [None]
  - DRUG INEFFECTIVE [None]
  - OVERDOSE [None]
  - FEELING JITTERY [None]
  - ARTHROPATHY [None]
  - LOWER RESPIRATORY TRACT INFECTION [None]
  - DYSPNOEA [None]
  - MELANOCYTIC NAEVUS [None]
  - MUSCLE SPASMS [None]
  - MUSCULOSKELETAL PAIN [None]
  - INDURATION [None]
  - HERPES ZOSTER [None]
  - OSTEOARTHRITIS [None]
  - POLLAKIURIA [None]
  - TACHYCARDIA [None]
  - ANAEMIA POSTOPERATIVE [None]
  - LOW TURNOVER OSTEOPATHY [None]
  - DIVERTICULUM [None]
  - ROAD TRAFFIC ACCIDENT [None]
  - HOT FLUSH [None]
  - DEVICE FAILURE [None]
  - WHEEZING [None]
  - NECK PAIN [None]
  - CARDIAC MURMUR [None]
  - MEMORY IMPAIRMENT [None]
